FAERS Safety Report 24131858 (Version 1)
Quarter: 2024Q3

REPORT INFORMATION
  Report Type: Report from Study
  Country: FR (occurrence: FR)
  Receive Date: 20240724
  Receipt Date: 20240724
  Transmission Date: 20241016
  Serious: Yes (Other)
  Sender: PFIZER
  Company Number: FR-SEATTLE GENETICS-2021SGN01457

PATIENT
  Age: 57 Year
  Sex: Female

DRUGS (6)
  1. TUCATINIB [Suspect]
     Active Substance: TUCATINIB
     Indication: HER2 positive breast cancer
     Dosage: 300 MG, BID
     Route: 048
     Dates: start: 20210205, end: 20210222
  2. TRASTUZUMAB [Suspect]
     Active Substance: TRASTUZUMAB
     Indication: HER2 positive breast cancer
     Dosage: 600 MG, EVERY 3 WEEKS
     Route: 058
     Dates: start: 20210204, end: 20210204
  3. CAPECITABINE [Suspect]
     Active Substance: CAPECITABINE
     Indication: HER2 positive breast cancer
     Dosage: 1000 MG/M2, 2X/DAY
     Route: 048
     Dates: start: 20210205, end: 20210223
  4. PREDNISOLONE [Concomitant]
     Active Substance: PREDNISOLONE
     Indication: Epilepsy
     Dosage: 20 MG, BID
     Route: 048
     Dates: start: 20201210
  5. LAMOTRIGINE [Concomitant]
     Active Substance: LAMOTRIGINE
     Dosage: 20 MG, BID
     Route: 048
     Dates: start: 20190701
  6. CLOBAZAM [Concomitant]
     Active Substance: CLOBAZAM
     Dosage: 5 MG, QD
     Route: 048
     Dates: start: 20201007, end: 20210215

REACTIONS (2)
  - Herpangina [Recovered/Resolved]
  - Urticaria [Recovered/Resolved]

NARRATIVE: CASE EVENT DATE: 20210223
